FAERS Safety Report 24253912 (Version 1)
Quarter: 2024Q3

REPORT INFORMATION
  Report Type: Spontaneous
  Country: US (occurrence: US)
  Receive Date: 20240827
  Receipt Date: 20240827
  Transmission Date: 20241016
  Serious: No
  Sender: BAYER
  Company Number: US-BAYER-2024A122947

PATIENT
  Age: 84 Year
  Sex: Male

DRUGS (1)
  1. MIRALAX [Suspect]
     Active Substance: POLYETHYLENE GLYCOL 3350
     Indication: Gastrointestinal disorder
     Dosage: I USUALLY TAKE THE NORMAL DOSE ONCE A DAY AND SOMETIMES I USE IT TWICE A DAY.
     Route: 048

REACTIONS (1)
  - Inappropriate schedule of product administration [Unknown]
